FAERS Safety Report 5366805-8 (Version None)
Quarter: 2007Q2

REPORT INFORMATION
  Report Type: 
  Country: None (occurrence: None)
  Receive Date: 20070622
  Receipt Date: 20060821
  Transmission Date: 20071010
  Serious: No
  Sender: FDA-Public Use
  Company Number: A0617476A

PATIENT
  Age: 45 Year
  Sex: Female

DRUGS (2)
  1. ZYBAN [Suspect]
     Route: 048
  2. NO CONCURRENT MEDICATION [Concomitant]

REACTIONS (2)
  - RASH [None]
  - URTICARIA [None]
